FAERS Safety Report 25582351 (Version 1)
Quarter: 2025Q3

REPORT INFORMATION
  Report Type: Spontaneous
  Country: GB (occurrence: GB)
  Receive Date: 20250720
  Receipt Date: 20250720
  Transmission Date: 20251021
  Serious: Yes (Other)
  Sender: AUROBINDO
  Company Number: GB-AUROBINDO-AUR-APL-2025-036571

PATIENT
  Age: 27 Year
  Sex: Female

DRUGS (7)
  1. TRANEXAMIC ACID [Suspect]
     Active Substance: TRANEXAMIC ACID
     Indication: Arterial haemorrhage
     Route: 065
  2. LIDOCAINE [Suspect]
     Active Substance: LIDOCAINE
     Indication: Epidural analgesia
     Route: 065
  3. LEVOBUPIVACAINE [Suspect]
     Active Substance: LEVOBUPIVACAINE
     Indication: Epidural analgesia
     Route: 065
  4. FENTANYL [Suspect]
     Active Substance: FENTANYL
     Indication: Epidural analgesia
     Route: 065
  5. SALINE [Suspect]
     Active Substance: SODIUM CHLORIDE
     Indication: Product used for unknown indication
     Route: 065
  6. EPINEPHRINE [Suspect]
     Active Substance: EPINEPHRINE
     Indication: Arterial haemorrhage
     Route: 058
  7. NITROUS OXIDE\OXYGEN [Suspect]
     Active Substance: NITROUS OXIDE\OXYGEN
     Indication: Analgesic therapy

REACTIONS (2)
  - Drug ineffective [Unknown]
  - Maternal exposure during delivery [Unknown]
